FAERS Safety Report 7493836-4 (Version None)
Quarter: 2011Q2

REPORT INFORMATION
  Report Type: 
  Country: None (occurrence: None)
  Receive Date: 20110513
  Receipt Date: 20110505
  Transmission Date: 20111010
  Serious: Yes (Hospitalization)
  Sender: FDA-Public Use
  Company Number: TRP_07721_2011

PATIENT
  Age: 53 Year
  Sex: Female

DRUGS (3)
  1. RIBAVIRIN [Suspect]
     Indication: HEPATITIS C
     Dosage: (1 G, PER DAY)
     Dates: start: 20080111, end: 20080626
  2. LEVOTHYROXINE SODIUM [Concomitant]
  3. PEGINTERFERON ALFA-2A [Suspect]
     Indication: HEPATITIS C
     Dosage: (180 UG 1X/WEEK)
     Dates: start: 20080111, end: 20080620

REACTIONS (13)
  - MYALGIA [None]
  - CREPITATIONS [None]
  - HILAR LYMPHADENOPATHY [None]
  - FATIGUE [None]
  - SKIN MASS [None]
  - BLOOD PH INCREASED [None]
  - DYSPNOEA [None]
  - WEIGHT DECREASED [None]
  - CHEST PAIN [None]
  - HEPATOSPLENOMEGALY [None]
  - LUNG INFILTRATION [None]
  - COUGH [None]
  - LYMPHADENOPATHY MEDIASTINAL [None]
